FAERS Safety Report 8422787-3 (Version None)
Quarter: 2012Q2

REPORT INFORMATION
  Report Type: 
  Country: None (occurrence: None)
  Receive Date: 20120608
  Receipt Date: 20120601
  Transmission Date: 20120825
  Serious: Yes (Other)
  Sender: FDA-Public Use
  Company Number: BE-B.I. PHARMACEUTICALS,INC./RIDGEFIELD-2012-BP-13205YA

PATIENT
  Sex: Female

DRUGS (1)
  1. TAMSULOSIN HCL [Suspect]
     Indication: URINARY TRACT INFECTION
     Dosage: 0.4 MG
     Route: 048

REACTIONS (5)
  - OFF LABEL USE [None]
  - HOT FLUSH [None]
  - VERTIGO [None]
  - NAUSEA [None]
  - HEADACHE [None]
